FAERS Safety Report 6390793-9 (Version None)
Quarter: 2009Q4

REPORT INFORMATION
  Report Type: 
  Country: None (occurrence: None)
  Receive Date: 20091001
  Receipt Date: 20090810
  Transmission Date: 20100525
  Serious: No
  Sender: FDA-Public Use
  Company Number: 1000008144

PATIENT
  Age: 72 Year
  Sex: Male

DRUGS (9)
  1. BYSTOLIC [Suspect]
     Indication: HYPERTENSION
     Dosage: 5 MG (5 MG, 1 D), ORAL;  2.5 MG (2.5 MG, 1 IN 1 D),ORAL
     Route: 048
     Dates: start: 20090721, end: 20090803
  2. BYSTOLIC [Suspect]
     Indication: HYPERTENSION
     Dosage: 5 MG (5 MG, 1 D), ORAL;  2.5 MG (2.5 MG, 1 IN 1 D),ORAL
     Route: 048
     Dates: start: 20090804
  3. WELLBUTRIN (200 MILLIGRAM) [Concomitant]
  4. ASPIRIN (81 MILLIGRAM) [Concomitant]
  5. IBUPROFEN [Concomitant]
  6. TYLENOL (CAPLET) [Concomitant]
  7. FISH OIL [Concomitant]
  8. VITAMINS (NOS) [Concomitant]
  9. GINSENG [Concomitant]

REACTIONS (3)
  - ASTHENIA [None]
  - HEADACHE [None]
  - HEART RATE DECREASED [None]
